FAERS Safety Report 15158942 (Version 1)
Quarter: 2018Q3

REPORT INFORMATION
  Report Type: Spontaneous
  Country: IT (occurrence: IT)
  Receive Date: 20180718
  Receipt Date: 20180718
  Transmission Date: 20181010
  Serious: Yes (Other)
  Sender: FDA-Public Use
  Company Number: IT-PFIZER INC-2018282869

PATIENT
  Age: 23 Year
  Sex: Female
  Weight: 90 kg

DRUGS (4)
  1. TALOFEN [Suspect]
     Active Substance: PROMAZINE HYDROCHLORIDE
     Dosage: 15 ML, SINGLE (4% 30 ML BOTTLE)
     Route: 048
     Dates: start: 20180606, end: 20180606
  2. XANAX [Suspect]
     Active Substance: ALPRAZOLAM
     Dosage: 12 DF, SINGLE
     Route: 048
     Dates: start: 20180606, end: 20180606
  3. BRINTELLIX [Suspect]
     Active Substance: VORTIOXETINE HYDROBROMIDE
     Dosage: 14 DF, SINGLE
     Route: 048
     Dates: start: 20180606, end: 20180606
  4. TOPAMAX [Suspect]
     Active Substance: TOPIRAMATE
     Dosage: 15 DF, SINGLE
     Route: 048
     Dates: start: 20180606, end: 20180606

REACTIONS (2)
  - Intentional overdose [Unknown]
  - Intentional self-injury [Unknown]

NARRATIVE: CASE EVENT DATE: 20180606
